FAERS Safety Report 9716519 (Version 2)
Quarter: 2014Q1

REPORT INFORMATION
  Report Type: Spontaneous
  Country: US (occurrence: US)
  Receive Date: 20131127
  Receipt Date: 20140211
  Transmission Date: 20141002
  Serious: No
  Sender: FDA-Public Use
  Company Number: US-PFIZER INC-2013334963

PATIENT
  Sex: Female

DRUGS (2)
  1. TIGAN [Suspect]
     Dosage: UNK
  2. AMITRIPTYLINE [Suspect]
     Dosage: UNK

REACTIONS (3)
  - Drug hypersensitivity [Unknown]
  - Injection site urticaria [Unknown]
  - Somnolence [Unknown]
